FAERS Safety Report 21888980 (Version 1)
Quarter: 2023Q1

REPORT INFORMATION
  Report Type: Spontaneous
  Country: US (occurrence: US)
  Receive Date: 20230120
  Receipt Date: 20230120
  Transmission Date: 20230417
  Serious: No
  Sender: FDA-Public Use
  Company Number: US-SANOFI-01448349

PATIENT
  Sex: Female

DRUGS (1)
  1. XYZAL [Suspect]
     Active Substance: LEVOCETIRIZINE DIHYDROCHLORIDE
     Dosage: UNK
     Route: 065

REACTIONS (7)
  - Feeling drunk [Unknown]
  - Disorientation [Unknown]
  - Constipation [Unknown]
  - Dry mouth [Unknown]
  - Drug hypersensitivity [Unknown]
  - Rhinitis allergic [Unknown]
  - Somnolence [Unknown]
